FAERS Safety Report 19933866 (Version 1)
Quarter: 2021Q4

REPORT INFORMATION
  Report Type: Spontaneous
  Country: US (occurrence: US)
  Receive Date: 20211008
  Receipt Date: 20211008
  Transmission Date: 20220303
  Serious: Yes (Other)
  Sender: FDA-Public Use
  Company Number: US-PFIZER INC-202101289539

PATIENT
  Age: 63 Year
  Sex: Female
  Weight: 61.23 kg

DRUGS (1)
  1. RELPAX [Suspect]
     Active Substance: ELETRIPTAN HYDROBROMIDE
     Indication: Migraine
     Dosage: 40 MG, AS NEEDED

REACTIONS (5)
  - Blindness [Unknown]
  - Dysphonia [Unknown]
  - Malaise [Unknown]
  - Product packaging difficult to open [Unknown]
  - Skin lesion [Unknown]

NARRATIVE: CASE EVENT DATE: 20210929
